FAERS Safety Report 15690390 (Version 3)
Quarter: 2019Q1

REPORT INFORMATION
  Report Type: Spontaneous
  Country: US (occurrence: US)
  Receive Date: 20181205
  Receipt Date: 20190107
  Transmission Date: 20190417
  Serious: No
  Sender: FDA-Public Use
  Company Number: US-PFIZER INC-2018502047

PATIENT
  Age: 80 Year

DRUGS (1)
  1. HALCION [Suspect]
     Active Substance: TRIAZOLAM
     Dosage: UNK

REACTIONS (2)
  - Hallucination [Unknown]
  - Drug hypersensitivity [Unknown]
